FAERS Safety Report 8535647-4 (Version None)
Quarter: 2012Q3

REPORT INFORMATION
  Report Type: 
  Country: None (occurrence: None)
  Receive Date: 20120725
  Receipt Date: 20120720
  Transmission Date: 20120928
  Serious: Yes (Other)
  Sender: FDA-Public Use
  Company Number: US-PFIZER INC-2012176245

PATIENT
  Sex: Female
  Weight: 68 kg

DRUGS (1)
  1. RAPAMUNE [Suspect]
     Indication: PROPHYLAXIS AGAINST TRANSPLANT REJECTION
     Dosage: 2 MG, ONCE A DAY
     Route: 048
     Dates: start: 20120703

REACTIONS (3)
  - RASH [None]
  - HAEMOGLOBIN DECREASED [None]
  - SKIN DISORDER [None]
